FAERS Safety Report 6293703-8 (Version None)
Quarter: 2009Q3

REPORT INFORMATION
  Report Type: 
  Country: None (occurrence: None)
  Receive Date: 20090803
  Receipt Date: 20090729
  Transmission Date: 20100115
  Serious: Yes (Hospitalization, Other)
  Sender: FDA-Public Use
  Company Number: FR-JNJFOC-20090709001

PATIENT
  Age: 46 Year
  Sex: Female

DRUGS (8)
  1. OFLOXACIN [Suspect]
     Indication: URINARY TRACT INFECTION
     Route: 048
  2. BACTRIM [Suspect]
     Indication: URINARY TRACT INFECTION
     Route: 048
  3. ROCEPHIN [Concomitant]
     Route: 042
  4. ROCEPHIN [Concomitant]
     Indication: URINARY TRACT INFECTION
     Route: 042
  5. GENTAMICIN SULFATE [Concomitant]
     Indication: URINARY TRACT INFECTION
     Route: 065
  6. IODE [Concomitant]
     Route: 042
  7. IODE [Concomitant]
     Indication: COMPUTERISED TOMOGRAM
     Route: 042
  8. NOROXIN [Concomitant]
     Indication: URINARY TRACT INFECTION
     Route: 048

REACTIONS (2)
  - BLOOD CREATININE INCREASED [None]
  - DRUG HYPERSENSITIVITY [None]
